FAERS Safety Report 8269089-6 (Version None)
Quarter: 2012Q2

REPORT INFORMATION
  Report Type: 
  Country: None (occurrence: None)
  Receive Date: 20120409
  Receipt Date: 20120329
  Transmission Date: 20120825
  Serious: No
  Sender: FDA-Public Use
  Company Number: US-JNJFOC-20120400535

PATIENT
  Age: 31 Year
  Sex: Male

DRUGS (8)
  1. HALDOL [Concomitant]
     Indication: SCHIZOPHRENIA
     Route: 048
  2. PAXIL [Concomitant]
     Route: 048
  3. ZYPREXA [Concomitant]
     Route: 048
  4. FLEXERIL [Concomitant]
     Route: 048
  5. INVEGA SUSTENNA [Suspect]
     Route: 030
     Dates: start: 20120101
  6. INVEGA SUSTENNA [Suspect]
     Indication: SCHIZOPHRENIA
     Route: 030
  7. ZOLOFT [Concomitant]
     Route: 048
  8. BUSPAR [Concomitant]
     Route: 048

REACTIONS (4)
  - DRY SKIN [None]
  - ERYTHEMA [None]
  - INAPPROPRIATE SCHEDULE OF DRUG ADMINISTRATION [None]
  - PRODUCT QUALITY ISSUE [None]
